FAERS Safety Report 15762552 (Version 1)
Quarter: 2018Q4

REPORT INFORMATION
  Report Type: Spontaneous
  Country: US (occurrence: US)
  Receive Date: 20181226
  Receipt Date: 20181226
  Transmission Date: 20190205
  Serious: Yes (Other)
  Sender: FDA-Public Use
  Company Number: US-CORCEPT THERAPEUTICS INC.-US-2018CRT001132

PATIENT

DRUGS (1)
  1. KORLYM [Suspect]
     Active Substance: MIFEPRISTONE
     Indication: CUSHING^S SYNDROME
     Dosage: 1500 MG, QD
     Route: 048
     Dates: start: 201706, end: 201811

REACTIONS (5)
  - Endometrial hypertrophy [Unknown]
  - Haemorrhage [Unknown]
  - Nasopharyngitis [Unknown]
  - Coronary artery occlusion [Unknown]
  - Myocardial infarction [Unknown]

NARRATIVE: CASE EVENT DATE: 2018
